FAERS Safety Report 7235308-8 (Version None)
Quarter: 2011Q1

REPORT INFORMATION
  Report Type: 
  Country: None (occurrence: None)
  Receive Date: 20110120
  Receipt Date: 20110112
  Transmission Date: 20110831
  Serious: Yes (Hospitalization, Other)
  Sender: FDA-Public Use
  Company Number: US-JNJFOC-20080501313

PATIENT
  Age: 32 Year
  Sex: Female
  Weight: 84.37 kg

DRUGS (4)
  1. ASACOL [Concomitant]
  2. REMICADE [Suspect]
     Route: 042
  3. REMICADE [Suspect]
     Indication: CROHN'S DISEASE
     Route: 042
  4. AZULFIDINE [Concomitant]
     Indication: CROHN'S DISEASE

REACTIONS (2)
  - INTRACRANIAL VENOUS SINUS THROMBOSIS [None]
  - ANTIPHOSPHOLIPID ANTIBODIES [None]
